FAERS Safety Report 5732517-1 (Version None)
Quarter: 2008Q2

REPORT INFORMATION
  Report Type: 
  Country: None (occurrence: None)
  Receive Date: 20080508
  Receipt Date: 20080501
  Transmission Date: 20081010
  Serious: Yes (Other)
  Sender: FDA-Public Use
  Company Number: GB-MERCK-0805GBR00013

PATIENT
  Age: 63 Year
  Sex: Male
  Weight: 101 kg

DRUGS (7)
  1. ZETIA [Suspect]
     Route: 048
     Dates: start: 20080111, end: 20080327
  2. ASPIRIN [Concomitant]
     Indication: MYOCARDIAL ISCHAEMIA
     Route: 048
     Dates: start: 20071201
  3. CLOPIDOGREL BISULFATE [Concomitant]
     Indication: MYOCARDIAL ISCHAEMIA
     Route: 048
     Dates: start: 20071001
  4. ACETAMINOPHEN AND CODEINE PHOSPHATE [Concomitant]
     Indication: PAIN
     Route: 048
     Dates: start: 20060101
  5. FUROSEMIDE [Concomitant]
     Indication: LEFT VENTRICULAR FAILURE
     Route: 048
     Dates: start: 20071001
  6. METFORMIN [Concomitant]
     Indication: DIABETES MELLITUS
     Route: 048
     Dates: start: 20080101
  7. PERINDOPRIL [Concomitant]
     Indication: MYOCARDIAL ISCHAEMIA
     Route: 048
     Dates: start: 20061001

REACTIONS (3)
  - DEPRESSED MOOD [None]
  - MEMORY IMPAIRMENT [None]
  - POOR QUALITY SLEEP [None]
